APPROVED DRUG PRODUCT: TOBRAMYCIN
Active Ingredient: TOBRAMYCIN
Strength: 0.3%
Dosage Form/Route: SOLUTION/DROPS;OPHTHALMIC
Application: A065087 | Product #001
Applicant: APOTEX INC
Approved: Feb 25, 2002 | RLD: No | RS: No | Type: DISCN